FAERS Safety Report 9746343 (Version 1)
Quarter: 2013Q4

REPORT INFORMATION
  Report Type: Spontaneous
  Country: US (occurrence: None)
  Receive Date: 20131209
  Receipt Date: 20131209
  Transmission Date: 20140711
  Serious: No
  Sender: FDA-Public Use
  Company Number: None

PATIENT
  Age: 20 Month
  Sex: Female

DRUGS (1)
  1. AMOXICILLIN [Suspect]
     Indication: EAR INFECTION
     Dosage: 400 MG/5ML
     Route: 048
     Dates: start: 20131129, end: 20131204

REACTIONS (5)
  - Aggression [None]
  - Oppositional defiant disorder [None]
  - Aggression [None]
  - Overdose [None]
  - Abnormal behaviour [None]
